FAERS Safety Report 9009089 (Version 1)
Quarter: 2013Q1

REPORT INFORMATION
  Report Type: Spontaneous
  Country: GB (occurrence: GB)
  Receive Date: 20130111
  Receipt Date: 20130111
  Transmission Date: 20140127
  Serious: Yes (Death, Other)
  Sender: FDA-Public Use
  Company Number: GB-ASTRAZENECA-2013SE01403

PATIENT
  Age: 77 Year
  Sex: Male

DRUGS (14)
  1. TICAGRELOR [Suspect]
     Indication: ACUTE CORONARY SYNDROME
     Route: 048
     Dates: start: 20121206
  2. ALENDRONIC ACID [Concomitant]
  3. ASPIRIN [Concomitant]
  4. ATORVASTATIN [Concomitant]
  5. AZITHROMYCIN [Concomitant]
  6. BISOPROLOL [Concomitant]
  7. GTN [Concomitant]
  8. ISOSORBIDE [Concomitant]
  9. LANSOPRAZOLE [Concomitant]
  10. MIRTAZAPINE [Concomitant]
  11. RAMIPRIL [Concomitant]
  12. SALBUTAMOL [Concomitant]
  13. SERETIDE [Concomitant]
  14. SPIRIVA [Concomitant]

REACTIONS (3)
  - Haemorrhage intracranial [Fatal]
  - Pupil fixed [Unknown]
  - Coma scale abnormal [Unknown]
